FAERS Safety Report 10812217 (Version 1)
Quarter: 2015Q1

REPORT INFORMATION
  Report Type: Report from Study
  Country: JP (occurrence: None)
  Receive Date: 20150212
  Receipt Date: 20150212
  Transmission Date: 20150721
  Serious: Yes (Life-Threatening, Hospitalization)
  Sender: FDA-Public Use
  Company Number: 2014FE02740

PATIENT
  Age: 78 Year
  Sex: Male

DRUGS (12)
  1. OXYCONTIN [Concomitant]
     Active Substance: OXYCODONE HYDROCHLORIDE
  2. SENNARIDE (SENNOSIDE A+B) [Concomitant]
  3. WARFARIN [Concomitant]
     Active Substance: WARFARIN
  4. TERPERAN (METOCLOPRAMIDE HYDROCHLORIDE) [Concomitant]
  5. BEPRICOR (BEPRIDIL HYDROCHLORIDE MONOHYDRATE) [Concomitant]
  6. TAKEPRON (LANSOPRAZOLE) [Concomitant]
     Active Substance: LANSOPRAZOLE
  7. MAGMITT (MAGNESIUM OXIDE) [Concomitant]
     Active Substance: MAGNESIUM OXIDE
  8. DEGARELIX (DEGARELIX) POWDER AND SOLVENT FOR SOLUTION FOR INJECTION [Suspect]
     Active Substance: DEGARELIX
     Route: 058
     Dates: start: 20130910, end: 20130910
  9. BLOPRESS (CANDESARTAN CILEXETIL) [Concomitant]
     Active Substance: CANDESARTAN CILEXETIL
  10. CIBENOL (CIBENZOLINE SUCCINATE) [Concomitant]
  11. CASODEX [Concomitant]
     Active Substance: BICALUTAMIDE
  12. HYPEN /00613801/ (ETODOLAC) [Concomitant]

REACTIONS (4)
  - Coma [None]
  - Brain contusion [None]
  - Fall [None]
  - Subarachnoid haemorrhage [None]

NARRATIVE: CASE EVENT DATE: 20140101
